FAERS Safety Report 8066828-4 (Version None)
Quarter: 2011Q4

REPORT INFORMATION
  Report Type: 
  Country: None (occurrence: None)
  Receive Date: 20111221
  Receipt Date: 20110217
  Transmission Date: 20120403
  Serious: Yes (Hospitalization, Other)
  Sender: FDA-Public Use
  Company Number: PHHY2011US10197

PATIENT
  Age: 53 Year
  Sex: Male
  Weight: 88.9 kg

DRUGS (2)
  1. EXJADE [Suspect]
     Dosage: 500 MG, TID, ORAL
     Route: 048
  2. TRANSFUSIONS (NO INGREDIENTS/SUBSTANCES) [Concomitant]

REACTIONS (2)
  - OEDEMA [None]
  - SWELLING [None]
